FAERS Safety Report 6422049-X (Version None)
Quarter: 2009Q4

REPORT INFORMATION
  Report Type: 
  Country: None (occurrence: None)
  Receive Date: 20091030
  Receipt Date: 20091022
  Transmission Date: 20100525
  Serious: Yes (Death)
  Sender: FDA-Public Use
  Company Number: CA-ABBOTT-08P-028-0446315-00

PATIENT
  Sex: Female
  Weight: 86 kg

DRUGS (10)
  1. HUMIRA [Suspect]
     Indication: PSORIASIS
     Route: 058
     Dates: start: 20080128, end: 20080331
  2. APO-FOLIC [Concomitant]
     Indication: ROUTINE HEALTH MAINTENANCE
     Route: 048
     Dates: start: 20071031
  3. VITAMIN B1 TAB [Concomitant]
     Indication: ROUTINE HEALTH MAINTENANCE
     Route: 048
     Dates: start: 20070802
  4. RATIO-FLUOXETINE [Concomitant]
     Indication: DEPRESSION
     Route: 048
     Dates: start: 20071028
  5. NOVO-CLOXIN [Concomitant]
     Indication: SKIN INFECTION
     Route: 048
     Dates: start: 20071130, end: 20071220
  6. DOVOBET OINTMENT [Concomitant]
     Indication: PSORIASIS
     Route: 062
     Dates: start: 20040101
  7. ELOCOM LOTION [Concomitant]
     Indication: PSORIASIS
     Route: 062
     Dates: start: 20071031
  8. CLOBETASOL PROPIONATE [Concomitant]
     Indication: PSORIASIS
     Route: 062
     Dates: start: 20020101
  9. DYAZIDE [Concomitant]
     Indication: OEDEMA PERIPHERAL
     Route: 048
     Dates: start: 20080207
  10. FUROSEMIDE [Concomitant]
     Indication: OEDEMA PERIPHERAL
     Route: 048
     Dates: start: 20080207

REACTIONS (3)
  - CEREBRAL HAEMORRHAGE [None]
  - CONVULSION [None]
  - PULMONARY OEDEMA [None]
